FAERS Safety Report 22339582 (Version 1)
Quarter: 2023Q2

REPORT INFORMATION
  Report Type: Report from Study
  Country: PH (occurrence: PH)
  Receive Date: 20230518
  Receipt Date: 20230518
  Transmission Date: 20230722
  Serious: Yes (Hospitalization)
  Sender: FDA-Public Use
  Company Number: PH-002147023-NVSC2023PH110403

PATIENT
  Age: 61 Year
  Sex: Female
  Weight: 62.6 kg

DRUGS (2)
  1. ENTRESTO [Suspect]
     Active Substance: SACUBITRIL\VALSARTAN
     Indication: Cardiac failure
     Dosage: 50 MG, BID
     Route: 048
  2. ENTRESTO [Suspect]
     Active Substance: SACUBITRIL\VALSARTAN
     Indication: Hypertensive heart disease

REACTIONS (3)
  - Palpitations [Unknown]
  - Malaise [Unknown]
  - Laboratory test abnormal [Unknown]
